FAERS Safety Report 10215931 (Version 1)
Quarter: 2014Q2

REPORT INFORMATION
  Report Type: Spontaneous
  Country: US (occurrence: None)
  Receive Date: 20140603
  Receipt Date: 20140603
  Transmission Date: 20141212
  Serious: Yes (Hospitalization)
  Sender: FDA-Public Use
  Company Number: None

PATIENT
  Age: 64 Year
  Sex: Female

DRUGS (1)
  1. EPZICOM TAB VIIV TAKE 1 DAILY ` [Suspect]
     Indication: HIV INFECTION
     Dosage: TAKE 1 TAB DAILY ORAL
     Route: 048
     Dates: start: 20140505

REACTIONS (2)
  - Drug dose omission [None]
  - Investigation [None]
